FAERS Safety Report 6839010-3 (Version None)
Quarter: 2010Q3

REPORT INFORMATION
  Report Type: 
  Country: None (occurrence: None)
  Receive Date: 20100713
  Receipt Date: 20080410
  Transmission Date: 20110219
  Serious: No
  Sender: FDA-Public Use
  Company Number: US-PFIZER INC-2007035191

PATIENT
  Sex: Female
  Weight: 84.8 kg

DRUGS (12)
  1. CHANTIX [Suspect]
     Indication: SMOKING CESSATION THERAPY
     Dates: start: 20080103
  2. SPIRIVA [Concomitant]
  3. DRUG, UNSPECIFIED [Concomitant]
  4. NEXIUM [Concomitant]
  5. ACETYLSALICYLIC ACID [Concomitant]
  6. DIAZEPAM [Concomitant]
  7. THEOPHYLLINE [Concomitant]
  8. METOPROLOL [Concomitant]
  9. ISOSORBIDE [Concomitant]
  10. PREVACID [Concomitant]
  11. HYDROCHLOROTHIAZIDE [Concomitant]
  12. OXYGEN [Concomitant]

REACTIONS (8)
  - ABNORMAL DREAMS [None]
  - BREAST DISCHARGE [None]
  - BREAST ENLARGEMENT [None]
  - DECREASED APPETITE [None]
  - MALAISE [None]
  - NAUSEA [None]
  - NIPPLE PAIN [None]
  - WEIGHT DECREASED [None]
